FAERS Safety Report 7074369-6 (Version None)
Quarter: 2010Q4

REPORT INFORMATION
  Report Type: 
  Country: None (occurrence: None)
  Receive Date: 20101029
  Receipt Date: 20101026
  Transmission Date: 20110411
  Serious: Yes (Hospitalization, Other)
  Sender: FDA-Public Use
  Company Number: FR-BRISTOL-MYERS SQUIBB COMPANY-15353774

PATIENT
  Age: 70 Year
  Sex: Male

DRUGS (4)
  1. APROVEL TABS 150 MG [Suspect]
     Indication: HYPERTENSION
     Route: 048
     Dates: end: 20090917
  2. ATENOLOL [Suspect]
     Indication: HYPERTENSION
     Dosage: UNK-17SEP09 AND RESTARTED
     Route: 048
  3. CRESTOR [Concomitant]
     Indication: DYSLIPIDAEMIA
     Dosage: 5MG.  1DF=FILM-COATED TABLET
     Route: 048
     Dates: end: 20090917
  4. KARDEGIC [Concomitant]

REACTIONS (9)
  - ALCOHOL POISONING [None]
  - CHOLESTASIS [None]
  - CONFUSIONAL STATE [None]
  - DECREASED APPETITE [None]
  - DISORIENTATION [None]
  - INFLAMMATION [None]
  - MALNUTRITION [None]
  - RENAL FAILURE ACUTE [None]
  - VOMITING [None]
